FAERS Safety Report 8445048-5 (Version None)
Quarter: 2012Q2

REPORT INFORMATION
  Report Type: 
  Country: None (occurrence: None)
  Receive Date: 20120618
  Receipt Date: 20120608
  Transmission Date: 20120825
  Serious: Yes (Hospitalization)
  Sender: FDA-Public Use
  Company Number: US-ACTELION-A-NJ2012-67214

PATIENT

DRUGS (3)
  1. VENTAVIS [Suspect]
     Indication: PULMONARY ARTERIAL HYPERTENSION
     Dosage: UNK
     Route: 055
     Dates: start: 20110221
  2. SILDENAFIL [Concomitant]
  3. COUMADIN [Concomitant]

REACTIONS (4)
  - ERYTHEMA [None]
  - PAIN [None]
  - SKIN INFECTION [None]
  - TENDERNESS [None]
